FAERS Safety Report 10569564 (Version 1)
Quarter: 2014Q4

REPORT INFORMATION
  Report Type: Spontaneous
  Country: CH (occurrence: CH)
  Receive Date: 20141106
  Receipt Date: 20141106
  Transmission Date: 20150529
  Serious: Yes (Hospitalization, Other)
  Sender: FDA-Public Use
  Company Number: CH-GLAXOSMITHKLINE-CH2014017063

PATIENT

DRUGS (8)
  1. SEROQUEL [Suspect]
     Active Substance: QUETIAPINE FUMARATE
     Route: 048
     Dates: end: 201409
  2. RIVOTRIL [Concomitant]
     Active Substance: CLONAZEPAM
     Route: 048
  3. PREZISTA [Concomitant]
     Active Substance: DARUNAVIR ETHANOLATE
  4. DEPAKINE CHRONO [Suspect]
     Active Substance: VALPROATE SODIUM
     Route: 048
  5. NORVIR [Suspect]
     Active Substance: RITONAVIR
     Route: 048
  6. LAMICTAL [Suspect]
     Active Substance: LAMOTRIGINE
  7. TRITTICO [Concomitant]
     Active Substance: TRAZODONE HYDROCHLORIDE
  8. TRUVADA [Concomitant]
     Active Substance: EMTRICITABINE\TENOFOVIR DISOPROXIL FUMARATE

REACTIONS (3)
  - Off label use [Recovered/Resolved]
  - Drug interaction [Recovered/Resolved]
  - Epilepsy [Unknown]

NARRATIVE: CASE EVENT DATE: 2014
